FAERS Safety Report 9196934 (Version 1)
Quarter: 2013Q1

REPORT INFORMATION
  Report Type: Spontaneous
  Country: US (occurrence: None)
  Receive Date: 20120709
  Receipt Date: 20120709
  Transmission Date: 20140127
  Serious: Yes (Other)
  Sender: FDA-Public Use
  Company Number: PHEH2012US02224

PATIENT
  Age: 59 Year
  Sex: Female

DRUGS (2)
  1. GLEEVEC [Suspect]
     Indication: ACUTE LYMPHOCYTIC LEUKAEMIA
  2. DASATINIB [Suspect]

REACTIONS (2)
  - Pleural effusion [None]
  - Drug hypersensitivity [None]
